FAERS Safety Report 19557295 (Version 1)
Quarter: 2021Q3

REPORT INFORMATION
  Report Type: Spontaneous
  Country: US (occurrence: US)
  Receive Date: 20210714
  Receipt Date: 20210714
  Transmission Date: 20211014
  Serious: No
  Sender: FDA-Public Use
  Company Number: US-ORGANON-O2107USA000288

PATIENT
  Sex: Female

DRUGS (2)
  1. NEXPLANON [Suspect]
     Active Substance: ETONOGESTREL
     Dosage: 1 IMPLANT
     Route: 059
     Dates: start: 202011
  2. NEXPLANON [Suspect]
     Active Substance: ETONOGESTREL
     Dosage: 1 IMPLANT,OVER 7 YEARS
     Route: 059

REACTIONS (5)
  - Implant site erythema [Unknown]
  - Implant site swelling [Unknown]
  - Incorrect product administration duration [Unknown]
  - Implant site pain [Unknown]
  - Implant site urticaria [Unknown]
